FAERS Safety Report 7565622-8 (Version None)
Quarter: 2011Q2

REPORT INFORMATION
  Report Type: 
  Country: None (occurrence: None)
  Receive Date: 20110623
  Receipt Date: 20110610
  Transmission Date: 20111010
  Serious: Yes (Life-Threatening, Other)
  Sender: FDA-Public Use
  Company Number: JP-JNJFOC-20100401084

PATIENT
  Age: 69 Year
  Sex: Male
  Weight: 67 kg

DRUGS (11)
  1. REMICADE [Suspect]
     Dosage: INFUSION 2 FOR PUSTULAR PSORIASIS
     Route: 042
     Dates: start: 20100330
  2. BONALFA [Concomitant]
     Indication: PUSTULAR PSORIASIS
     Dosage: ROUTE: OD
  3. ACETAMINOPHEN [Concomitant]
     Indication: PROPHYLAXIS
     Route: 048
     Dates: start: 20100312, end: 20100406
  4. REMICADE [Suspect]
     Dosage: FOR RHEUMATOID ARTHRITIS
     Route: 042
     Dates: start: 20080601
  5. REMICADE [Suspect]
     Dosage: FOR RHEUMATOID ARTHRITIS
     Route: 042
     Dates: start: 20080601
  6. REMICADE [Suspect]
     Dosage: INFUSION 2 FOR PUSTULAR PSORIASIS
     Route: 042
     Dates: start: 20100330
  7. FAMOTIDINE [Concomitant]
     Indication: PROPHYLAXIS
     Route: 048
     Dates: start: 20100312, end: 20100406
  8. REMICADE [Suspect]
     Indication: RHEUMATOID ARTHRITIS
     Dosage: INFUSION 1 FOR PUSTULAR PSORIASIS
     Route: 042
     Dates: start: 20100316
  9. TALION [Concomitant]
     Indication: PROPHYLAXIS
     Route: 048
     Dates: start: 20100312, end: 20100406
  10. MYSER [Concomitant]
     Indication: PUSTULAR PSORIASIS
     Dosage: STARTED BEFORE INFLIXIMAB THERAPY  ROUTE: OD
  11. REMICADE [Suspect]
     Indication: PUSTULAR PSORIASIS
     Dosage: INFUSION 1 FOR PUSTULAR PSORIASIS
     Route: 042
     Dates: start: 20100316

REACTIONS (4)
  - LOSS OF CONSCIOUSNESS [None]
  - PYREXIA [None]
  - ASPIRATION [None]
  - INFUSION RELATED REACTION [None]
